FAERS Safety Report 14057783 (Version 1)
Quarter: 2017Q4

REPORT INFORMATION
  Report Type: Spontaneous
  Country: FR (occurrence: FR)
  Receive Date: 20171006
  Receipt Date: 20171006
  Transmission Date: 20180321
  Serious: Yes (Hospitalization)
  Sender: FDA-Public Use
  Company Number: FR-GLAXOSMITHKLINE-FR2017GSK152924

PATIENT
  Age: 4 Year
  Sex: Female

DRUGS (3)
  1. LAMICTAL [Suspect]
     Active Substance: LAMOTRIGINE
     Indication: EPILEPSY
     Dosage: 10 MG, QD
     Route: 048
     Dates: start: 20160501, end: 20170606
  2. LAMICTAL [Suspect]
     Active Substance: LAMOTRIGINE
     Indication: PETIT MAL EPILEPSY
  3. LAMICTAL [Suspect]
     Active Substance: LAMOTRIGINE
     Indication: SEIZURE

REACTIONS (1)
  - Constipation [Recovered/Resolved]

NARRATIVE: CASE EVENT DATE: 201606
